FAERS Safety Report 9101564 (Version 2)
Quarter: 2013Q1

REPORT INFORMATION
  Report Type: Spontaneous
  Country: IE (occurrence: IE)
  Receive Date: 20130215
  Receipt Date: 20130305
  Transmission Date: 20140127
  Serious: Yes (Other)
  Sender: FDA-Public Use
  Company Number: IE-PFIZER INC-2012285310

PATIENT
  Age: 37 Year
  Sex: Female

DRUGS (3)
  1. LYRICA [Suspect]
     Indication: GENERALISED ANXIETY DISORDER
     Dosage: 300 MG, 2X/DAY
  2. LYRICA [Suspect]
     Indication: PERSONALITY DISORDER
     Dosage: 5000 MG, 1X/DAY
  3. LYRICA [Suspect]
     Dosage: 400 MG, 2X/DAY

REACTIONS (4)
  - Drug abuse [Unknown]
  - Delusional perception [Recovered/Resolved]
  - Euphoric mood [Unknown]
  - Withdrawal syndrome [Unknown]
